FAERS Safety Report 9315788 (Version 1)
Quarter: 2013Q2

REPORT INFORMATION
  Report Type: Spontaneous
  Country: AT (occurrence: AT)
  Receive Date: 20130529
  Receipt Date: 20130529
  Transmission Date: 20140414
  Serious: Yes (Hospitalization, Other)
  Sender: FDA-Public Use
  Company Number: AT-UCBSA-086703

PATIENT
  Age: 56 Year
  Sex: Female
  Weight: 70 kg

DRUGS (3)
  1. CIMZIA [Suspect]
     Indication: RHEUMATOID ARTHRITIS
     Dates: start: 20120917, end: 20130310
  2. EPITHREXAT [Suspect]
     Dosage: DOSE: 10MG/WEEK
     Dates: end: 20130321
  3. APREDNISOLON [Suspect]
     Dosage: DOSE: 5 MG
     Dates: end: 20130321

REACTIONS (4)
  - Device related infection [Unknown]
  - Staphylococcal sepsis [Unknown]
  - Escherichia test positive [None]
  - Klebsiella test positive [None]
